FAERS Safety Report 4557234-5 (Version None)
Quarter: 2005Q1

REPORT INFORMATION
  Report Type: 
  Country: None (occurrence: None)
  Receive Date: 20050119
  Receipt Date: 20050119
  Transmission Date: 20050727
  Serious: Yes (Hospitalization)
  Sender: FDA-Public Use
  Company Number: None

PATIENT
  Age: 84 Year
  Sex: Female

DRUGS (20)
  1. BEXTRA [Suspect]
     Indication: ARTHRITIS
     Dosage: 20 MG DAILY
  2. ACTOS [Suspect]
     Dosage: 45 MG DAILY
  3. ACTOS [Concomitant]
  4. VERELAN [Concomitant]
  5. MICRONASE [Concomitant]
  6. CELEXA [Concomitant]
  7. AXID [Concomitant]
  8. ALLOPURINOL [Concomitant]
  9. DIGOXIN [Concomitant]
  10. LASIX [Concomitant]
  11. ZAROXOLYN [Concomitant]
  12. DIOVAN [Concomitant]
  13. M.V.I. [Concomitant]
  14. NIASPAN [Concomitant]
  15. NITROGLYCERIN [Concomitant]
  16. ALLEGRA [Concomitant]
  17. NITRO-DUR [Concomitant]
  18. PRAVACHOL [Concomitant]
  19. ECOTRIN [Concomitant]
  20. PRANDIN [Concomitant]

REACTIONS (3)
  - CARDIOMYOPATHY [None]
  - DYSPNOEA [None]
  - DYSPNOEA EXERTIONAL [None]
